FAERS Safety Report 8761155 (Version 1)
Quarter: 2012Q4

REPORT INFORMATION
  Report Type: 
  Country: US (occurrence: US)
  Receive Date: 20120830
  Receipt Date: 20120830
  Transmission Date: 20130627
  Serious: Yes (Hospitalization, Other)
  Sender: FDA-Public Use
  Company Number: US-JNJFOC-20120812863

PATIENT

DRUGS (3)
  1. XARELTO [Suspect]
     Indication: THROMBOSIS PROPHYLAXIS
     Route: 048
     Dates: end: 201208
  2. XARELTO [Suspect]
     Indication: KNEE OPERATION
     Route: 048
     Dates: end: 201208
  3. XARELTO [Suspect]
     Indication: HIP SURGERY
     Route: 048
     Dates: end: 201208

REACTIONS (1)
  - Pulmonary embolism [Unknown]
